FAERS Safety Report 15803281 (Version 2)
Quarter: 2019Q1

REPORT INFORMATION
  Report Type: Report from Study
  Country: AR (occurrence: AR)
  Receive Date: 20190109
  Receipt Date: 20190124
  Transmission Date: 20190417
  Serious: Yes (Other)
  Sender: FDA-Public Use
  Company Number: PHHY2019AR002100

PATIENT
  Sex: Male

DRUGS (1)
  1. EXFORGE [Suspect]
     Active Substance: AMLODIPINE BESYLATE\VALSARTAN
     Indication: HYPERTENSION
     Dosage: 1 DF (AMLODIPINE 10, VALSARTAN 160), QD (4 MONTHS AGO)
     Route: 065

REACTIONS (11)
  - Gingival pain [Unknown]
  - Aneurysm [Unknown]
  - Drug intolerance [Unknown]
  - Thalassaemia [Unknown]
  - Odynophagia [Unknown]
  - Skin discolouration [Recovering/Resolving]
  - Oropharyngeal pain [Unknown]
  - Headache [Unknown]
  - Oedema peripheral [Unknown]
  - Oral pain [Unknown]
  - Lip discolouration [Unknown]
